FAERS Safety Report 19144639 (Version 1)
Quarter: 2021Q2

REPORT INFORMATION
  Report Type: Other
  Country: CA (occurrence: CA)
  Receive Date: 20210416
  Receipt Date: 20210416
  Transmission Date: 20210717
  Serious: Yes (Other)
  Sender: FDA-Public Use
  Company Number: CA-CELLTRION INC.-2021CA004711

PATIENT

DRUGS (2)
  1. RITUXIMAB (UNKNOWN) [Suspect]
     Active Substance: RITUXIMAB
     Dosage: 500 MILLIGRAM, 1 EVERY 6 MONTHS
     Route: 042
  2. RITUXIMAB (UNKNOWN) [Suspect]
     Active Substance: RITUXIMAB
     Indication: ROSAI-DORFMAN SYNDROME
     Dosage: 1000 MILLIGRAM
     Route: 042

REACTIONS (8)
  - Nasal disorder [Unknown]
  - Rosai-Dorfman syndrome [Unknown]
  - Bone formation increased [Unknown]
  - Palatal disorder [Unknown]
  - Intentional product use issue [Unknown]
  - Oral disorder [Unknown]
  - Off label use [Unknown]
  - Bone lesion [Unknown]
